FAERS Safety Report 9257095 (Version 3)
Quarter: 2013Q2

REPORT INFORMATION
  Report Type: Spontaneous
  Country: FR (occurrence: None)
  Receive Date: 20130423
  Receipt Date: 20130607
  Transmission Date: 20140414
  Serious: Yes (Hospitalization)
  Sender: FDA-Public Use
  Company Number: 2013-1611

PATIENT
  Age: 48 Year
  Sex: Female
  Weight: 62 kg

DRUGS (3)
  1. LANREOTIDE [Suspect]
     Indication: ACROMEGALY
     Dosage: 90 MG (90 MG, 1 IN 1 M), UNKNOWN
     Dates: start: 20100925
  2. SEROPLEX 10MG [Concomitant]
  3. PARACETAMOL [Concomitant]

REACTIONS (6)
  - Pituitary haemorrhage [None]
  - Neoplasm [None]
  - Headache [None]
  - Blindness [None]
  - Tumour haemorrhage [None]
  - Tumour necrosis [None]
